FAERS Safety Report 20136828 (Version 1)
Quarter: 2021Q4

REPORT INFORMATION
  Report Type: Other
  Country: US (occurrence: US)
  Receive Date: 20211201
  Receipt Date: 20211201
  Transmission Date: 20220303
  Serious: No
  Sender: FDA-Public Use
  Company Number: US-LEADIANT BIOSCIENCES INC-2020STPI000445

PATIENT
  Sex: Male

DRUGS (1)
  1. CYSTARAN [Suspect]
     Active Substance: CYSTEAMINE HYDROCHLORIDE
     Indication: Cystinosis
     Dosage: 1 DROP EVERY HOUR WHILE AWAKE
     Route: 047
     Dates: start: 20200214

REACTIONS (2)
  - Eyelid margin crusting [Unknown]
  - Visual impairment [Unknown]
